FAERS Safety Report 9817639 (Version 1)
Quarter: 2013Q4

REPORT INFORMATION
  Report Type: Spontaneous
  Country: US (occurrence: None)
  Receive Date: 20131223
  Receipt Date: 20131223
  Transmission Date: 20140711
  Serious: Yes (Other)
  Sender: FDA-Public Use
  Company Number: 219209

PATIENT
  Sex: Male

DRUGS (2)
  1. PICATO [Suspect]
     Indication: PRECANCEROUS CELLS PRESENT
     Dosage: APPLIED ON SHOULDER AND NECK AREA
     Dates: start: 20120922, end: 20120923
  2. BETAMETHASONE (BETAMETHASONE) [Concomitant]

REACTIONS (5)
  - Application site burn [None]
  - Application site erythema [None]
  - Application site warmth [None]
  - Application site pain [None]
  - Drug administered at inappropriate site [None]
